FAERS Safety Report 9167039 (Version 1)
Quarter: 2013Q1

REPORT INFORMATION
  Report Type: Spontaneous
  Country: US (occurrence: US)
  Receive Date: 20130318
  Receipt Date: 20130318
  Transmission Date: 20140127
  Serious: Yes (Hospitalization)
  Sender: FDA-Public Use
  Company Number: US-AMGEN-USASP2013015173

PATIENT
  Age: 73 Year
  Sex: Female
  Weight: 82.54 kg

DRUGS (6)
  1. NEULASTA [Suspect]
     Indication: PRODUCT USED FOR UNKNOWN INDICATION
     Dosage: 6 MG, 1X
     Route: 058
     Dates: start: 20130213, end: 20130213
  2. NEUPOGEN [Concomitant]
     Indication: PRODUCT USED FOR UNKNOWN INDICATION
  3. RITUXIMAB [Concomitant]
     Indication: B-CELL LYMPHOMA
     Dosage: 690 MG, 1 X
     Route: 042
     Dates: start: 20130211, end: 20130211
  4. DOXORUBICIN [Concomitant]
     Indication: B-CELL LYMPHOMA
     Dosage: 92 MG,  1 X
     Route: 042
     Dates: start: 20130212, end: 20130212
  5. CYCLOPHOSPHAMIDE [Concomitant]
     Indication: B-CELL LYMPHOMA
     Dosage: 1380 MG,  1 X
     Route: 042
     Dates: start: 20130212, end: 20130212
  6. VINCRISTINE [Concomitant]
     Indication: B-CELL LYMPHOMA
     Dosage: 2 MG, 1 X
     Route: 042
     Dates: start: 20130212, end: 20130212

REACTIONS (5)
  - Neutropenia [Recovered/Resolved]
  - Decreased appetite [Unknown]
  - Abdominal pain [Unknown]
  - Asthenia [Unknown]
  - Therapeutic response decreased [Unknown]
